FAERS Safety Report 18013724 (Version 1)
Quarter: 2020Q3

REPORT INFORMATION
  Report Type: Spontaneous
  Country: CA (occurrence: CA)
  Receive Date: 20200713
  Receipt Date: 20200713
  Transmission Date: 20201103
  Serious: Yes (Hospitalization, Other)
  Sender: FDA-Public Use
  Company Number: CA-TEVA-2020-CA-1798408

PATIENT
  Age: 66 Year
  Sex: Male

DRUGS (12)
  1. PREGABALIN. [Suspect]
     Active Substance: PREGABALIN
     Indication: BACK PAIN
     Dosage: 150 MILLIGRAM DAILY;
     Route: 048
  2. OXYNEO [Concomitant]
     Active Substance: OXYCODONE
  3. TELMISARTAN. [Concomitant]
     Active Substance: TELMISARTAN
  4. ACETAMINOPHEN AND CODEINE [Concomitant]
     Active Substance: ACETAMINOPHEN\CODEINE PHOSPHATE
  5. ADVAIR HFA [Concomitant]
     Active Substance: FLUTICASONE PROPIONATE\SALMETEROL XINAFOATE
  6. ASA [Concomitant]
     Active Substance: ASPIRIN
  7. METFORMIN [Concomitant]
     Active Substance: METFORMIN HYDROCHLORIDE
  8. FUROSEMIDE. [Concomitant]
     Active Substance: FUROSEMIDE
  9. TRAJENTA [Concomitant]
     Active Substance: LINAGLIPTIN
  10. CELECOXIB. [Concomitant]
     Active Substance: CELECOXIB
  11. SALBUTAMOL [Concomitant]
     Active Substance: ALBUTEROL
  12. SPIRIVA [Concomitant]
     Active Substance: TIOTROPIUM BROMIDE MONOHYDRATE

REACTIONS (2)
  - Multiple fractures [Recovered/Resolved]
  - Seizure [Recovered/Resolved]
